FAERS Safety Report 8595716-X (Version None)
Quarter: 2012Q3

REPORT INFORMATION
  Report Type: 
  Country: None (occurrence: None)
  Receive Date: 20120815
  Receipt Date: 20120809
  Transmission Date: 20120928
  Serious: Yes (Other)
  Sender: FDA-Public Use
  Company Number: PHHY2012GB066001

PATIENT
  Age: 73 Year
  Sex: Female

DRUGS (2)
  1. OMEPRAZOLE [Suspect]
     Indication: GASTROINTESTINAL DISORDER
  2. NAPROXEN [Concomitant]
     Indication: ARTHRITIS

REACTIONS (2)
  - CUTANEOUS LUPUS ERYTHEMATOSUS [None]
  - RASH [None]
